FAERS Safety Report 9410150 (Version 1)
Quarter: 2013Q2

REPORT INFORMATION
  Report Type: Spontaneous
  Country: US (occurrence: None)
  Receive Date: 20130418
  Receipt Date: 20130418
  Transmission Date: 20140414
  Serious: Yes (Hospitalization)
  Sender: FDA-Public Use
  Company Number: AE1337

PATIENT
  Age: 4 Month
  Sex: Male

DRUGS (1)
  1. HYLAND^S BABY TEETHING TABLETS 135 COUNT [Suspect]
     Indication: TEETHING
     Dosage: 2 TABS 4/1 + 2 TABS PREV

REACTIONS (3)
  - Dyspnoea [None]
  - Irritability [None]
  - Somnolence [None]
